FAERS Safety Report 6712906-9 (Version None)
Quarter: 2010Q2

REPORT INFORMATION
  Report Type: 
  Country: None (occurrence: None)
  Receive Date: 20100505
  Receipt Date: 20100505
  Transmission Date: 20101027
  Serious: Yes (Other)
  Sender: FDA-Public Use
  Company Number: None

PATIENT

DRUGS (1)
  1. TAMSULOSIN 0.4MG ZYDUS PHARMACEUTICALS [Suspect]
     Indication: BENIGN PROSTATIC HYPERPLASIA
     Dosage: 0.4MG TWICE DAILY PO
     Route: 048
     Dates: start: 20100422, end: 20100429

REACTIONS (2)
  - PRODUCT SUBSTITUTION ISSUE [None]
  - URTICARIA [None]
